FAERS Safety Report 19403745 (Version 1)
Quarter: 2021Q2

REPORT INFORMATION
  Report Type: Spontaneous
  Country: CN (occurrence: CN)
  Receive Date: 20210610
  Receipt Date: 20210610
  Transmission Date: 20210717
  Serious: Yes (Other)
  Sender: FDA-Public Use
  Company Number: CN-BAXTER-2021BAX014961

PATIENT
  Age: 16 Year
  Sex: Female
  Weight: 53 kg

DRUGS (8)
  1. HOLOXAN [Suspect]
     Active Substance: IFOSFAMIDE
     Indication: MALIGNANT CONNECTIVE TISSUE NEOPLASM
     Dosage: FOURTH COURSE,?HOLOXAN FOR INJECTION 3.50G+ 0.9% SODIUM CHLORIDE INJECTION 500ML (D1?4)
     Route: 041
     Dates: start: 20210524, end: 20210527
  2. 0.9% SODIUM CHLORIDE INJECTION [Suspect]
     Active Substance: SODIUM CHLORIDE
     Dosage: FOURTH COURSE?HOLOXAN FOR INJECTION 3.50G+ 0.9% SODIUM CHLORIDE INJECTION 500ML (D1?4)
     Route: 041
     Dates: start: 20210524, end: 20210527
  3. ETOPOSIDE. [Suspect]
     Active Substance: ETOPOSIDE
     Indication: MALIGNANT CONNECTIVE TISSUE NEOPLASM
     Dosage: FOURTH COURSE?ETOPOSIDE INJECTION 150 MG + 0.9% SODIUM CHLORIDE INJECTION 750ML (D1?4)
     Route: 041
     Dates: start: 20210524, end: 20210527
  4. ETOPOSIDE. [Suspect]
     Active Substance: ETOPOSIDE
     Indication: SOFT TISSUE SARCOMA
     Dosage: FIRST 3 COURSES?ETOPOSIDE INJECTION + 0.9% SODIUM CHLORIDE INJECTION
     Route: 041
  5. HOLOXAN [Suspect]
     Active Substance: IFOSFAMIDE
     Indication: SOFT TISSUE SARCOMA
     Dosage: FIRST 3 COURSES?HOLOXAN FOR INJECTION + 0.9% SODIUM CHLORIDE INJECTION
     Route: 041
  6. 0.9% SODIUM CHLORIDE INJECTION [Suspect]
     Active Substance: SODIUM CHLORIDE
     Dosage: FIRST 3 COURSES?ETOPOSIDE INJECTION + 0.9% SODIUM CHLORIDE INJECTION
     Route: 041
  7. 0.9% SODIUM CHLORIDE INJECTION [Suspect]
     Active Substance: SODIUM CHLORIDE
     Dosage: FOURTH COURSE?ETOPOSIDE INJECTION 150 MG + 0.9% SODIUM CHLORIDE INJECTION 750ML (D1?4)
     Route: 041
     Dates: start: 20210524, end: 20210527
  8. 0.9% SODIUM CHLORIDE INJECTION [Suspect]
     Active Substance: SODIUM CHLORIDE
     Indication: MEDICATION DILUTION
     Dosage: FIRST 3 COURSES?HOLOXAN FOR INJECTION + 0.9% SODIUM CHLORIDE INJECTION
     Route: 041

REACTIONS (1)
  - Myelosuppression [Recovering/Resolving]

NARRATIVE: CASE EVENT DATE: 20210530
